FAERS Safety Report 13269395 (Version 11)
Quarter: 2018Q2

REPORT INFORMATION
  Report Type: Report from Study
  Country: None (occurrence: US)
  Receive Date: 20170224
  Receipt Date: 20180606
  Transmission Date: 20180711
  Serious: Yes (Hospitalization, Other)
  Sender: FDA-Public Use
  Company Number: US-ABBVIE-17K-163-1840838-00

PATIENT
  Sex: Male

DRUGS (5)
  1. HUMIRA [Suspect]
     Active Substance: ADALIMUMAB
     Route: 058
     Dates: start: 2007, end: 2010
  2. HUMIRA [Suspect]
     Active Substance: ADALIMUMAB
     Route: 058
     Dates: start: 2010
  3. HUMIRA [Suspect]
     Active Substance: ADALIMUMAB
     Route: 058
     Dates: start: 2006, end: 2007
  4. HUMIRA [Suspect]
     Active Substance: ADALIMUMAB
     Indication: RHEUMATOID ARTHRITIS
     Route: 058
     Dates: start: 2005, end: 2006
  5. TRAMADOL. [Concomitant]
     Active Substance: TRAMADOL
     Indication: PRODUCT USED FOR UNKNOWN INDICATION

REACTIONS (21)
  - Anticoagulant therapy [Unknown]
  - Heat stroke [Unknown]
  - Arthralgia [Not Recovered/Not Resolved]
  - Rotator cuff syndrome [Recovering/Resolving]
  - Spinal rod insertion [Recovering/Resolving]
  - Postoperative adhesion [Unknown]
  - Pain [Unknown]
  - Osteoarthritis [Not Recovered/Not Resolved]
  - Cervical radiculopathy [Unknown]
  - Laryngeal injury [Unknown]
  - Blood calcium increased [Unknown]
  - Bursitis [Recovering/Resolving]
  - Post procedural complication [Unknown]
  - Musculoskeletal pain [Unknown]
  - Blood cholesterol increased [Unknown]
  - Intervertebral disc degeneration [Not Recovered/Not Resolved]
  - Arterial occlusive disease [Recovering/Resolving]
  - Musculoskeletal stiffness [Unknown]
  - Eye pain [Unknown]
  - Pain in extremity [Unknown]
  - Drug effect decreased [Unknown]

NARRATIVE: CASE EVENT DATE: 2006
